FAERS Safety Report 8246097-2 (Version None)
Quarter: 2012Q1

REPORT INFORMATION
  Report Type: 
  Country: None (occurrence: None)
  Receive Date: 20120328
  Receipt Date: 20120328
  Transmission Date: 20120608
  Serious: Yes (Other)
  Sender: FDA-Public Use
  Company Number: None

PATIENT
  Age: 68 Year
  Sex: Female
  Weight: 65.7716 kg

DRUGS (3)
  1. SINGULAIR [Suspect]
     Indication: MULTIPLE ALLERGIES
     Dosage: 1 AT NIGHT
     Dates: start: 20120101
  2. SINGULAIR [Suspect]
     Indication: ASTHMA
     Dosage: 1 AT NIGHT
     Dates: start: 20120101
  3. LEVOTHYROXINE SODIUM [Suspect]
     Dosage: 1 A DAY
     Dates: start: 20111201

REACTIONS (7)
  - MOOD ALTERED [None]
  - DISORIENTATION [None]
  - IRRITABILITY [None]
  - DEPRESSION [None]
  - TREMOR [None]
  - HOSTILITY [None]
  - AGITATION [None]
